FAERS Safety Report 7138473-6 (Version None)
Quarter: 2010Q4

REPORT INFORMATION
  Report Type: 
  Country: None (occurrence: None)
  Receive Date: 20101206
  Receipt Date: 20101202
  Transmission Date: 20110411
  Serious: Yes (Death, Other)
  Sender: FDA-Public Use
  Company Number: PHHY2010DE50723

PATIENT
  Sex: Female
  Weight: 64 kg

DRUGS (2)
  1. RASILEZ HCT [Suspect]
     Indication: CARDIAC FAILURE
     Dosage: ONE DOSAGE FORM (300/12.5 MG) DAILY
     Route: 048
     Dates: start: 20100520, end: 20100811
  2. FUROSEMIDE [Interacting]
     Dosage: UNK
     Dates: start: 20090204

REACTIONS (4)
  - BRAIN NATRIURETIC PEPTIDE INCREASED [None]
  - CARDIAC FAILURE [None]
  - DRUG INTERACTION [None]
  - OEDEMA [None]
